FAERS Safety Report 9511089 (Version 1)
Quarter: 2013Q1

REPORT INFORMATION
  Report Type: Spontaneous
  Country: US (occurrence: None)
  Receive Date: 20130305
  Receipt Date: 20130305
  Transmission Date: 20140127
  Serious: Yes (Life-Threatening, Hospitalization, Other)
  Sender: FDA-Public Use
  Company Number: 163-21880-12071560

PATIENT
  Age: 81 Year
  Sex: Female

DRUGS (3)
  1. REVLIMID [Suspect]
     Indication: MYELODYSPLASTIC SYNDROME
     Route: 048
     Dates: start: 20120504, end: 20120719
  2. PLATELETS (PLATELETS) (UNKNOWN) [Concomitant]
  3. PROCRIT (ERYTHROPOIETEIN) (UNKNOWN) [Concomitant]

REACTIONS (3)
  - Platelet count decreased [None]
  - Pancytopenia [None]
  - Pneumonia [None]
